FAERS Safety Report 5169400-9 (Version None)
Quarter: 2006Q4

REPORT INFORMATION
  Report Type: 
  Country: None (occurrence: None)
  Receive Date: 20061211
  Receipt Date: 20061130
  Transmission Date: 20070319
  Serious: Yes (Other)
  Sender: FDA-Public Use
  Company Number: GB-NOVOPROD-258955

PATIENT
  Sex: Female

DRUGS (1)
  1. KLIOVANCE [Suspect]
     Indication: DRUG USE FOR UNKNOWN INDICATION
     Dates: start: 19990101

REACTIONS (2)
  - BLINDNESS TRANSIENT [None]
  - MIGRAINE [None]
